FAERS Safety Report 6583991-2 (Version None)
Quarter: 2010Q1

REPORT INFORMATION
  Report Type: 
  Country: None (occurrence: None)
  Receive Date: 20100216
  Receipt Date: 20091221
  Transmission Date: 20100710
  Serious: No
  Sender: FDA-Public Use
  Company Number: US-ABBOTT-09P-163-0615644-00

PATIENT
  Sex: Male
  Weight: 78.996 kg

DRUGS (4)
  1. SIMCOR [Suspect]
     Indication: BLOOD CHOLESTEROL ABNORMAL
     Dosage: 500/20 MG NIGHTLY
     Dates: start: 20091220
  2. ASPIRIN [Concomitant]
     Indication: DRUG USE FOR UNKNOWN INDICATION
     Route: 048
  3. ATENOLOL [Concomitant]
     Indication: DRUG USE FOR UNKNOWN INDICATION
     Route: 048
  4. ADVICOR [Concomitant]
     Indication: DRUG USE FOR UNKNOWN INDICATION
     Dosage: 500/20MG
     Route: 048
     Dates: end: 20091215

REACTIONS (1)
  - FLUSHING [None]
